FAERS Safety Report 17846464 (Version 1)
Quarter: 2020Q2

REPORT INFORMATION
  Report Type: Spontaneous
  Country: CA (occurrence: CA)
  Receive Date: 20200601
  Receipt Date: 20200601
  Transmission Date: 20200714
  Serious: Yes (Hospitalization, Other)
  Sender: FDA-Public Use
  Company Number: CA-TEVA-2020-CA-1242637

PATIENT
  Age: 65 Year
  Sex: Male

DRUGS (10)
  1. HYDROMORPHONE HYDROCHLORIDE. [Suspect]
     Active Substance: HYDROMORPHONE HYDROCHLORIDE
     Route: 048
  2. SENNA ALEXANDRINA [Concomitant]
     Active Substance: SENNA LEAF
  3. HYDROMORPH CONTIN [Suspect]
     Active Substance: HYDROMORPHONE
     Indication: FLANK PAIN
     Dosage: 24 MILLIGRAM DAILY;
     Route: 048
  4. SOFLAX [DOCUSATE SODIUM] [Concomitant]
  5. HYDROMORPHONE HYDROCHLORIDE. [Suspect]
     Active Substance: HYDROMORPHONE HYDROCHLORIDE
     Indication: FLANK PAIN
     Route: 065
  6. LACTULOSE. [Concomitant]
     Active Substance: LACTULOSE
  7. LORAZEPAM. [Concomitant]
     Active Substance: LORAZEPAM
  8. MACROGOL 3350 [Concomitant]
     Active Substance: POLYETHYLENE GLYCOL 3350
  9. PANTOPRAZOLE [Concomitant]
     Active Substance: PANTOPRAZOLE
  10. TAXOTERE [Concomitant]
     Active Substance: DOCETAXEL

REACTIONS (8)
  - Delirium [Unknown]
  - Hallucination [Unknown]
  - Disturbance in attention [Unknown]
  - Dyskinesia [Unknown]
  - Speech disorder [Unknown]
  - Toxicity to various agents [Unknown]
  - Insomnia [Unknown]
  - Clonus [Unknown]
